FAERS Safety Report 14773713 (Version 1)
Quarter: 2018Q2

REPORT INFORMATION
  Report Type: Spontaneous
  Country: FR (occurrence: FR)
  Receive Date: 20180418
  Receipt Date: 20180418
  Transmission Date: 20180711
  Serious: Yes (Hospitalization)
  Sender: FDA-Public Use
  Company Number: FR-ROCHE-2109714

PATIENT
  Age: 42 Year
  Sex: Male

DRUGS (3)
  1. VALIUM [Suspect]
     Active Substance: DIAZEPAM
     Indication: TOXICITY TO VARIOUS AGENTS
     Route: 048
     Dates: start: 20180123, end: 20180123
  2. TERCIAN [Suspect]
     Active Substance: CYAMEMAZINE
     Indication: TOXICITY TO VARIOUS AGENTS
     Route: 048
     Dates: start: 20180123, end: 20180123
  3. ALCOOL [Suspect]
     Active Substance: ALCOHOL
     Indication: TOXICITY TO VARIOUS AGENTS
     Dosage: DATE AND TIME OF LAST ADMINISTRATION: 23/JAN/2018
     Route: 048
     Dates: start: 20180123

REACTIONS (4)
  - Intentional product misuse [Unknown]
  - Ex-drug abuser [Recovered/Resolved]
  - Agitation [Recovered/Resolved]
  - Drug dependence [Recovering/Resolving]

NARRATIVE: CASE EVENT DATE: 20180123
